FAERS Safety Report 24729029 (Version 3)
Quarter: 2025Q4

REPORT INFORMATION
  Report Type: Report from Study
  Country: US (occurrence: US)
  Receive Date: 20241213
  Receipt Date: 20251027
  Transmission Date: 20260118
  Serious: Yes (Other)
  Sender: ACADIA PHARMACEUTICALS
  Company Number: US-ACADIA PHARMACEUTICALS INC.-ACA-2024-PIM-008033

PATIENT
  Age: 73 Year
  Sex: Male

DRUGS (2)
  1. NUPLAZID [Suspect]
     Active Substance: PIMAVANSERIN TARTRATE
     Indication: Orthostatic hypotension
     Dosage: 34 MILLIGRAM, QD
     Route: 048
     Dates: start: 202312
  2. NUPLAZID [Suspect]
     Active Substance: PIMAVANSERIN TARTRATE
     Indication: Parkinson^s disease psychosis

REACTIONS (10)
  - Hallucination, visual [Unknown]
  - Tremor [Unknown]
  - On and off phenomenon [Unknown]
  - Amnesia [Unknown]
  - Mobility decreased [Unknown]
  - Urinary incontinence [Unknown]
  - Speech disorder [Unknown]
  - Loss of personal independence in daily activities [Not Recovered/Not Resolved]
  - Gait disturbance [Not Recovered/Not Resolved]
  - Drug ineffective [Unknown]

NARRATIVE: CASE EVENT DATE: 20241101
